FAERS Safety Report 13504589 (Version 1)
Quarter: 2017Q2

REPORT INFORMATION
  Report Type: Spontaneous
  Country: US (occurrence: US)
  Receive Date: 20170502
  Receipt Date: 20170502
  Transmission Date: 20170830
  Serious: No
  Sender: FDA-Public Use
  Company Number: US-WARNER CHILCOTT-2017-000079

PATIENT
  Age: 62 Year
  Sex: Female

DRUGS (5)
  1. FEMRING [Suspect]
     Active Substance: ESTRADIOL ACETATE
     Dosage: ONCE EVERY THREE MONTHS
     Route: 067
     Dates: start: 2011
  2. PROGESTERONE. [Concomitant]
     Active Substance: PROGESTERONE
     Indication: HOT FLUSH
  3. FEMRING [Suspect]
     Active Substance: ESTRADIOL ACETATE
     Indication: MENOPAUSE
     Dosage: ONCE EVERY THREE MONTHS
     Route: 067
     Dates: start: 2012
  4. THYROID PREPARATIONS [Concomitant]
     Active Substance: UNSPECIFIED INGREDIENT
     Indication: THYROID DISORDER
     Dosage: UNK
     Route: 048
  5. PROGESTERONE. [Concomitant]
     Active Substance: PROGESTERONE
     Indication: MENOPAUSE
     Dosage: UNK, UNKNOWN
     Route: 048

REACTIONS (2)
  - Hot flush [Not Recovered/Not Resolved]
  - Drug ineffective [Not Recovered/Not Resolved]

NARRATIVE: CASE EVENT DATE: 201701
